FAERS Safety Report 11816019 (Version 1)
Quarter: 2015Q4

REPORT INFORMATION
  Report Type: Spontaneous
  Country: US (occurrence: US)
  Receive Date: 20151209
  Receipt Date: 20151209
  Transmission Date: 20160314
  Serious: No
  Sender: FDA-Public Use
  Company Number: US-ALK ABELLO INC-1045274

PATIENT
  Age: 52 Year

DRUGS (7)
  1. METROGEL [Concomitant]
     Active Substance: METRONIDAZOLE
     Route: 003
  2. DYMISTA [Concomitant]
     Active Substance: AZELASTINE HYDROCHLORIDE\FLUTICASONE PROPIONATE
     Route: 045
  3. PRILOSEC [Concomitant]
     Active Substance: OMEPRAZOLE MAGNESIUM
     Route: 048
  4. STATIN [Concomitant]
     Active Substance: UNSPECIFIED INGREDIENT
     Route: 048
  5. ALLERGENS EXTRACT NOS [Suspect]
     Active Substance: ALLERGENIC EXTRACTS
  6. BEPREVE [Concomitant]
     Active Substance: BEPOTASTINE BESILATE
     Route: 047
  7. NASONEX [Concomitant]
     Active Substance: MOMETASONE FUROATE
     Route: 045

REACTIONS (3)
  - Urticaria [Recovered/Resolved]
  - Anaphylactic reaction [None]
  - Pruritus [Recovered/Resolved]
